FAERS Safety Report 23870731 (Version 2)
Quarter: 2024Q2

REPORT INFORMATION
  Report Type: Spontaneous
  Country: AT (occurrence: AT)
  Receive Date: 20240518
  Receipt Date: 20240523
  Transmission Date: 20240716
  Serious: Yes (Other)
  Sender: FDA-Public Use
  Company Number: AT-CELLTRION INC.-2022AT022530

PATIENT

DRUGS (27)
  1. RITUXIMAB [Suspect]
     Active Substance: RITUXIMAB
     Indication: Diffuse large B-cell lymphoma
     Dosage: 1 UNK
     Route: 065
     Dates: start: 201908, end: 201912
  2. RITUXIMAB [Suspect]
     Active Substance: RITUXIMAB
     Indication: B-cell lymphoma refractory
     Dosage: CYCLE 1
     Dates: start: 201908, end: 201912
  3. RITUXIMAB [Suspect]
     Active Substance: RITUXIMAB
     Indication: B-cell lymphoma stage I
     Dosage: CYCLE 2
     Dates: start: 201908, end: 201912
  4. RITUXIMAB [Suspect]
     Active Substance: RITUXIMAB
     Dosage: CYCLE 3
     Dates: start: 201908, end: 201912
  5. RITUXIMAB [Suspect]
     Active Substance: RITUXIMAB
     Dosage: CYCLE 4
     Dates: start: 201908, end: 201912
  6. RITUXIMAB [Suspect]
     Active Substance: RITUXIMAB
     Dosage: CYCLE 5
     Dates: start: 201908, end: 201912
  7. RITUXIMAB [Suspect]
     Active Substance: RITUXIMAB
     Dosage: CYCLE 6
     Dates: start: 201908, end: 201912
  8. RITUXIMAB [Suspect]
     Active Substance: RITUXIMAB
     Dosage: UNK 1, CYCLE
     Route: 065
     Dates: start: 202003, end: 202007
  9. RITUXIMAB [Suspect]
     Active Substance: RITUXIMAB
     Dosage: CYCLE 1 (AS SECOND LINE TREATMENT), 2 CYCLES OF SECOND LINE THERAPY
     Route: 065
  10. RITUXIMAB [Suspect]
     Active Substance: RITUXIMAB
     Dosage: CYCLE 2 (AS SECOND LINE TREATMENT), 2 CYCLES OF SECOND LINE THERAPY
     Route: 065
  11. RITUXIMAB [Suspect]
     Active Substance: RITUXIMAB
     Dosage: 1 CYCLE
     Dates: start: 202003, end: 202007
  12. RITUXIMAB [Suspect]
     Active Substance: RITUXIMAB
     Dosage: UNK
     Route: 065
     Dates: start: 202106
  13. PREDNISOLONE [Suspect]
     Active Substance: PREDNISOLONE
     Indication: Diffuse large B-cell lymphoma
     Dosage: UNK
     Route: 065
  14. VINCRISTINE [Suspect]
     Active Substance: VINCRISTINE
     Indication: Diffuse large B-cell lymphoma
     Dosage: UNK
     Route: 065
  15. POLIVY [Suspect]
     Active Substance: POLATUZUMAB VEDOTIN-PIIQ
     Indication: Diffuse large B-cell lymphoma refractory
     Dosage: 1 CYCLE
     Route: 065
     Dates: start: 202003
  16. POLIVY [Suspect]
     Active Substance: POLATUZUMAB VEDOTIN-PIIQ
     Dosage: CYCLE 1, 2 CYCLES OF SECOND LINE THERAPY
     Route: 065
  17. POLIVY [Suspect]
     Active Substance: POLATUZUMAB VEDOTIN-PIIQ
     Dosage: CYCLE 2, 2 CYCLES OF SECOND LINE THERAPY
     Route: 065
  18. POLIVY [Suspect]
     Active Substance: POLATUZUMAB VEDOTIN-PIIQ
     Dosage: 1 CYCLE
     Route: 065
     Dates: start: 202003, end: 202007
  19. CYCLOPHOSPHAMIDE [Suspect]
     Active Substance: CYCLOPHOSPHAMIDE
     Indication: Diffuse large B-cell lymphoma
     Route: 065
  20. BENDAMUSTINE [Suspect]
     Active Substance: BENDAMUSTINE
     Indication: Diffuse large B-cell lymphoma
     Dosage: UNK
     Route: 065
     Dates: start: 202003
  21. BENDAMUSTINE [Suspect]
     Active Substance: BENDAMUSTINE
     Indication: B-cell lymphoma refractory
     Dosage: CYCLE 1, 2 CYCLES OF SECOND LINE THERAPY
     Route: 065
  22. BENDAMUSTINE [Suspect]
     Active Substance: BENDAMUSTINE
     Indication: B-cell lymphoma stage I
     Dosage: CYCLE 2, 2 CYCLES OF SECOND LINE THERAPY
     Route: 065
  23. BENDAMUSTINE [Suspect]
     Active Substance: BENDAMUSTINE
     Dosage: UNK 1, CYCLIC
     Route: 065
     Dates: start: 202003, end: 202007
  24. DOXORUBICIN [Suspect]
     Active Substance: DOXORUBICIN
     Indication: Diffuse large B-cell lymphoma
     Dosage: UNK
     Route: 065
  25. POLATUZUMAB VEDOTIN [Concomitant]
     Active Substance: POLATUZUMAB VEDOTIN
     Indication: B-cell lymphoma stage I
     Dosage: 2 CYCLES OF SECOND LINE THERAPY
     Route: 065
  26. POLATUZUMAB VEDOTIN [Concomitant]
     Active Substance: POLATUZUMAB VEDOTIN
     Dosage: EVERY 1 CYCLE
     Dates: start: 202003, end: 202007
  27. BENDAMUSTINE [Concomitant]
     Active Substance: BENDAMUSTINE

REACTIONS (7)
  - Diffuse large B-cell lymphoma [Unknown]
  - Disease progression [Unknown]
  - General physical health deterioration [Unknown]
  - Neutropenia [Unknown]
  - COVID-19 [Recovered/Resolved]
  - Fatigue [Unknown]
  - Product use issue [Unknown]

NARRATIVE: CASE EVENT DATE: 20200301
